FAERS Safety Report 12968781 (Version 1)
Quarter: 2016Q4

REPORT INFORMATION
  Report Type: Spontaneous
  Country: US (occurrence: US)
  Receive Date: 20161121
  Receipt Date: 20161121
  Transmission Date: 20170207
  Serious: Yes (Hospitalization)
  Sender: FDA-Public Use
  Company Number: None

PATIENT
  Age: 54 Year
  Sex: Female
  Weight: 66.28 kg

DRUGS (20)
  1. IBUPROFEN. [Concomitant]
     Active Substance: IBUPROFEN
  2. REGENECARE GEL [Concomitant]
  3. PRILOSEC [Concomitant]
     Active Substance: OMEPRAZOLE MAGNESIUM
  4. TRAZODONE (DESYREL) [Concomitant]
  5. IMODIUM [Concomitant]
     Active Substance: LOPERAMIDE HYDROCHLORIDE
  6. CEFDINIR. [Concomitant]
     Active Substance: CEFDINIR
  7. NORCO [Concomitant]
     Active Substance: ACETAMINOPHEN\HYDROCODONE BITARTRATE
  8. ACYCLOVIR (ZOVIRAX) [Concomitant]
  9. VALCYCLOVIR (VALTREX) [Concomitant]
  10. HYCODAN(HYDROCODONE-HOMATROPINE) [Concomitant]
  11. NUCYNTA ER [Concomitant]
     Active Substance: TAPENTADOL HYDROCHLORIDE
  12. MACROBID [Concomitant]
     Active Substance: NITROFURANTOIN\NITROFURANTOIN MONOHYDRATE
  13. XANAX (ALAPRAZAM) [Concomitant]
  14. TESSALON(BENZONATE) [Concomitant]
  15. LEXAPRO [Concomitant]
     Active Substance: ESCITALOPRAM OXALATE
  16. CLINDAMYCIN GEL [Concomitant]
  17. AZITHROMYCIN ANHYDROUS. [Concomitant]
     Active Substance: AZITHROMYCIN ANHYDROUS
  18. ALBUTEROL INHALER (PROVENTIL) [Concomitant]
  19. AVASTIN [Suspect]
     Active Substance: BEVACIZUMAB
  20. SALINE NASAL GEL [Concomitant]

REACTIONS (5)
  - Rectal haemorrhage [None]
  - Hypoaesthesia [None]
  - Dyspnoea [None]
  - Chest pain [None]
  - Coronary artery stenosis [None]

NARRATIVE: CASE EVENT DATE: 20161017
